FAERS Safety Report 6089849-X (Version None)
Quarter: 2009Q1

REPORT INFORMATION
  Report Type: 
  Country: None (occurrence: None)
  Receive Date: 20090224
  Receipt Date: 20081118
  Transmission Date: 20090719
  Serious: No
  Sender: FDA-Public Use
  Company Number: US-ABBOTT-08P-163-0488864-00

PATIENT
  Sex: Female

DRUGS (10)
  1. SIMCOR [Suspect]
     Indication: BLOOD CHOLESTEROL
     Dosage: 1 IN 1 D AT BEDTIME
     Dates: start: 20081114
  2. SIMCOR [Suspect]
     Indication: BLOOD TRIGLYCERIDES INCREASED
  3. ACETYLSALICYLIC ACID SRT [Concomitant]
     Indication: DRUG USE FOR UNKNOWN INDICATION
     Route: 048
  4. ESCITALOPRAM OXALATE [Concomitant]
     Indication: DRUG USE FOR UNKNOWN INDICATION
     Route: 048
  5. ALPRAZOLAM [Concomitant]
     Indication: DRUG USE FOR UNKNOWN INDICATION
  6. OLMESARTAN MEDOXOMIL [Concomitant]
     Indication: DRUG USE FOR UNKNOWN INDICATION
  7. ATORVASTATIN CALCIUM [Concomitant]
     Indication: DRUG USE FOR UNKNOWN INDICATION
  8. ROSUVASTATIN CALCIUM [Concomitant]
     Indication: MYALGIA
  9. ROSUVASTATIN CALCIUM [Concomitant]
     Indication: FLATULENCE
  10. UNKNOWN BACK PAIN MEDICATIONS [Concomitant]
     Indication: BACK PAIN

REACTIONS (4)
  - FLATULENCE [None]
  - FLUSHING [None]
  - HEADACHE [None]
  - MUSCLE SPASMS [None]
